FAERS Safety Report 7256952-8 (Version None)
Quarter: 2011Q1

REPORT INFORMATION
  Report Type: 
  Country: None (occurrence: None)
  Receive Date: 20110129
  Receipt Date: 20100714
  Transmission Date: 20110831
  Serious: No
  Sender: FDA-Public Use
  Company Number: US-ABBOTT-10P-163-0657150-00

PATIENT
  Age: 26 Year
  Sex: Female

DRUGS (6)
  1. SLOW-FE [Concomitant]
     Indication: MINERAL SUPPLEMENTATION
  2. ASACOL [Concomitant]
     Indication: INFLAMMATION
  3. DEPO-PROVERA [Concomitant]
     Indication: CONTRACEPTION
  4. VITAMIN D [Concomitant]
     Indication: PRODUCT USED FOR UNKNOWN INDICATION
  5. HUMIRA [Suspect]
     Indication: CROHN'S DISEASE
     Dates: start: 20100101
  6. 6-NP [Concomitant]
     Indication: CROHN'S DISEASE

REACTIONS (8)
  - MUSCLE TWITCHING [None]
  - INJECTION SITE ERYTHEMA [None]
  - OSTEOPOROSIS [None]
  - VISION BLURRED [None]
  - INSOMNIA [None]
  - MUSCLE SPASMS [None]
  - INJECTION SITE PAIN [None]
  - JOINT CREPITATION [None]
